FAERS Safety Report 7345269-9 (Version None)
Quarter: 2011Q1

REPORT INFORMATION
  Report Type: 
  Country: None (occurrence: None)
  Receive Date: 20110310
  Receipt Date: 20110302
  Transmission Date: 20110831
  Serious: Yes (Hospitalization)
  Sender: FDA-Public Use
  Company Number: FR-ELI_LILLY_AND_COMPANY-FR201103000871

PATIENT
  Age: 40 Year
  Sex: Male

DRUGS (4)
  1. ZYPADHERA [Suspect]
     Indication: SCHIZOPHRENIA
     Dosage: 300 MG, EVRY 15 DAYS
     Route: 030
     Dates: start: 20110119
  2. ZYPREXA [Suspect]
     Indication: SCHIZOPHRENIA
     Dosage: 30 MG, DAILY (1/D)
  3. ZYPREXA [Suspect]
     Dosage: 40 MG, DAILY (1/D)
     Route: 048
  4. ZYPREXA [Suspect]
     Dosage: 20 MG, DAILY (1/D)
     Route: 048

REACTIONS (6)
  - INTENTIONAL DRUG MISUSE [None]
  - TRAUMATIC LIVER INJURY [None]
  - SCHIZOPHRENIA [None]
  - MULTIPLE FRACTURES [None]
  - DELIRIUM [None]
  - OVERDOSE [None]
